FAERS Safety Report 4658788-0 (Version None)
Quarter: 2005Q2

REPORT INFORMATION
  Report Type: 
  Country: None (occurrence: None)
  Receive Date: 20050510
  Receipt Date: 20050510
  Transmission Date: 20051028
  Serious: Yes (Hospitalization, Other)
  Sender: FDA-Public Use
  Company Number: None

PATIENT
  Sex: Male
  Weight: 64.5 kg

DRUGS (7)
  1. CYCLOPHOSPHAMIDE [Suspect]
     Dosage: 1200 MG/M2 IV OVER 15-30 MIN ON DAY 1
     Route: 042
     Dates: start: 20040611, end: 20050125
  2. DAUNORUBICIN HCL [Suspect]
     Dosage: 80 MG /M2 /DAY X 3 DAYS IV ON DYS 1, 2, 3
     Route: 042
  3. VINCRISTINE [Suspect]
     Dosage: 2 MG IVP ON DAYS 1, 8, 15, 22
     Route: 042
  4. DEXAMETHASONE [Suspect]
     Dosage: 5 MG /M2 PO BID ON DAYS 1-7
     Route: 048
  5. L-ASPARAGINASE [Suspect]
     Dosage: 6000  U/M2 SC/IM ON DAYS 5, 8,11,15, 18, 22
     Route: 058
  6. G-CSF [Suspect]
     Dosage: 5 MCG/KG/DAY SC STARTING DAY 4 X 7 DAYS AND CONTINUING UNTIL ANC IS } 5000 MCL PRN
     Route: 058
     Dates: end: 20050128
  7. ACYCLOVIR [Suspect]
     Dosage: CONTINUING FROM CYCLE IV) 800 MG PO QID UNTIL 6 MONTHS POST-CHEMO OR RECOVERY OF PERIPHERAL CD4 AND
     Route: 048

REACTIONS (1)
  - FEBRILE NEUTROPENIA [None]
